FAERS Safety Report 4796454-1 (Version None)
Quarter: 2005Q4

REPORT INFORMATION
  Report Type: 
  Country: None (occurrence: None)
  Receive Date: 20051011
  Receipt Date: 20050121
  Transmission Date: 20060501
  Serious: Yes (Other)
  Sender: FDA-Public Use
  Company Number: 2005-01-1639

PATIENT
  Sex: Male

DRUGS (3)
  1. TEMODAR [Suspect]
     Indication: ANAPLASTIC ASTROCYTOMA
     Dosage: 75-150MG/M2 ORAL, 150MG/M25D ORAL
     Route: 048
  2. DILANTIN [Concomitant]
  3. RADIATION THERAPY [Concomitant]

REACTIONS (2)
  - GRAND MAL CONVULSION [None]
  - SIMPLE PARTIAL SEIZURES [None]
